FAERS Safety Report 22938747 (Version 3)
Quarter: 2023Q4

REPORT INFORMATION
  Report Type: Spontaneous
  Country: DE (occurrence: DE)
  Receive Date: 20230913
  Receipt Date: 20231124
  Transmission Date: 20240110
  Serious: Yes (Hospitalization, Other)
  Sender: FDA-Public Use
  Company Number: DE-OTSUKA-2022_050880

PATIENT
  Age: 56 Year
  Sex: Male

DRUGS (10)
  1. ARIPIPRAZOLE [Suspect]
     Active Substance: ARIPIPRAZOLE
     Indication: Schizophrenia
     Dosage: 30 MG, QD (FOR YEARS)
     Route: 048
     Dates: end: 20220714
  2. ARIPIPRAZOLE [Suspect]
     Active Substance: ARIPIPRAZOLE
     Dosage: 20 MG, QD
     Route: 048
     Dates: end: 20220717
  3. ARIPIPRAZOLE [Suspect]
     Active Substance: ARIPIPRAZOLE
     Dosage: 10 MG, QD
     Route: 048
     Dates: end: 20220722
  4. CLOZAPINE [Suspect]
     Active Substance: CLOZAPINE
     Indication: Schizophrenia
     Dosage: 250 MG, QD
  5. CLOZAPINE [Suspect]
     Active Substance: CLOZAPINE
     Dosage: DOSE REDUCED
  6. CLOZAPINE [Suspect]
     Active Substance: CLOZAPINE
     Dosage: 200 MG, QD (FOR YEARS UNTIL FURTHER NOTICE)
     Route: 048
  7. RAMIPRIL [Concomitant]
     Active Substance: RAMIPRIL
     Indication: Essential hypertension
     Dosage: 5 MG, QD (FOR YEARS UNTIL FURTHER NOTICE)
     Route: 048
  8. TAVOR (LORAZEPAM) [Concomitant]
     Active Substance: LORAZEPAM
     Indication: Epilepsy
     Dosage: 2 MG, QD (FOR YEARS UNTIL FURTHER NOTICE)
     Route: 048
  9. VALPROATE [Concomitant]
     Active Substance: VALPROIC ACID
     Indication: Epilepsy
     Dosage: 1300 MG, QD (FOR YEARS UNTIL FURTHER NOTICE)
     Route: 048
  10. TORSEMIDE [Concomitant]
     Active Substance: TORSEMIDE
     Indication: Essential hypertension
     Dosage: 5 MG, QD (FOR YEARS UNTIL FURTHER NOTICE)
     Route: 048

REACTIONS (9)
  - Torticollis [Recovered/Resolved]
  - Hyponatraemia [Unknown]
  - Dyskinesia [Recovered/Resolved]
  - C-reactive protein increased [Unknown]
  - Muscle spasms [Unknown]
  - Myalgia [Unknown]
  - Antipsychotic drug level below therapeutic [Unknown]
  - Balance disorder [Unknown]
  - Pain [Unknown]
